FAERS Safety Report 21044697 (Version 1)
Quarter: 2022Q3

REPORT INFORMATION
  Report Type: Spontaneous
  Country: US (occurrence: US)
  Receive Date: 20220705
  Receipt Date: 20220705
  Transmission Date: 20221027
  Serious: No
  Sender: FDA-Public Use
  Company Number: US-PFIZER INC-202200916372

PATIENT
  Age: 54 Year
  Sex: Female
  Weight: 108.86 kg

DRUGS (3)
  1. ESTRING [Suspect]
     Active Substance: ESTRADIOL
     Indication: Vulvovaginal dryness
     Dosage: UNK
     Route: 067
  2. ESTRING [Suspect]
     Active Substance: ESTRADIOL
     Indication: Burning sensation
  3. LOVENOX [Concomitant]
     Active Substance: ENOXAPARIN SODIUM
     Indication: Prophylaxis
     Dosage: 0.8 ML (120MG PER 0.8ML) (BOXES OF 10)

REACTIONS (4)
  - Off label use [Unknown]
  - Therapeutic response unexpected [Unknown]
  - Symptom recurrence [Not Recovered/Not Resolved]
  - Loss of personal independence in daily activities [Unknown]
